FAERS Safety Report 15556011 (Version 3)
Quarter: 2018Q4

REPORT INFORMATION
  Report Type: Report from Study
  Country: US (occurrence: US)
  Receive Date: 20181026
  Receipt Date: 20181211
  Transmission Date: 20190205
  Serious: Yes (Hospitalization)
  Sender: FDA-Public Use
  Company Number: US-EISAI MEDICAL RESEARCH-EC-2018-041086

PATIENT
  Age: 80 Year
  Sex: Female

DRUGS (4)
  1. LENVIMA [Suspect]
     Active Substance: LENVATINIB
     Indication: THYROID CANCER
     Dosage: VIA J-TUBE
     Route: 050
     Dates: start: 20180605, end: 201808
  2. LENVIMA [Suspect]
     Active Substance: LENVATINIB
     Dosage: VIA-J TUBE
     Route: 048
     Dates: start: 20180907, end: 201810
  3. ZOFRAN [Concomitant]
     Active Substance: ONDANSETRON HYDROCHLORIDE
  4. LISINOPRIL. [Concomitant]
     Active Substance: LISINOPRIL

REACTIONS (14)
  - Arterial haemorrhage [Not Recovered/Not Resolved]
  - Paraesthesia [Not Recovered/Not Resolved]
  - Tumour ulceration [Not Recovered/Not Resolved]
  - Diarrhoea [Not Recovered/Not Resolved]
  - Bronchial disorder [Not Recovered/Not Resolved]
  - Fatigue [Not Recovered/Not Resolved]
  - Nausea [Not Recovered/Not Resolved]
  - Peripheral swelling [Not Recovered/Not Resolved]
  - Palmar-plantar erythrodysaesthesia syndrome [Not Recovered/Not Resolved]
  - Thrombosis [Not Recovered/Not Resolved]
  - Sepsis [Not Recovered/Not Resolved]
  - Dizziness [Not Recovered/Not Resolved]
  - Blood pressure increased [Recovered/Resolved]
  - Weight decreased [Not Recovered/Not Resolved]

NARRATIVE: CASE EVENT DATE: 2018
